FAERS Safety Report 17408480 (Version 1)
Quarter: 2020Q1

REPORT INFORMATION
  Report Type: Spontaneous
  Country: RS (occurrence: RS)
  Receive Date: 20200212
  Receipt Date: 20200212
  Transmission Date: 20200409
  Serious: Yes (Death, Hospitalization)
  Sender: FDA-Public Use
  Company Number: RS-JNJFOC-20200204029

PATIENT
  Age: 70 Year
  Sex: Male

DRUGS (2)
  1. RIVAROXABAN [Suspect]
     Active Substance: RIVAROXABAN
     Indication: ATRIAL FIBRILLATION
  2. RIVAROXABAN [Suspect]
     Active Substance: RIVAROXABAN
     Indication: CEREBROVASCULAR ACCIDENT PROPHYLAXIS
     Dosage: 20 MG, QD
     Route: 048

REACTIONS (6)
  - Death [Fatal]
  - Fall [Unknown]
  - Loss of consciousness [Unknown]
  - Coma [Unknown]
  - Drug ineffective [Unknown]
  - Ischaemic cerebral infarction [Fatal]

NARRATIVE: CASE EVENT DATE: 20200110
